FAERS Safety Report 18403265 (Version 2)
Quarter: 2020Q4

REPORT INFORMATION
  Report Type: Other
  Country: DE (occurrence: DE)
  Receive Date: 20201019
  Receipt Date: 20201126
  Transmission Date: 20210114
  Serious: Yes (Other)
  Sender: FDA-Public Use
  Company Number: DE-ROCHE-2698153

PATIENT
  Age: 35 Year
  Weight: 84 kg

DRUGS (9)
  1. GLATIRAMER ACETATE. [Suspect]
     Active Substance: GLATIRAMER ACETATE
     Indication: PRODUCT USED FOR UNKNOWN INDICATION
     Route: 065
  2. FEMIBION [Concomitant]
     Dates: start: 201909, end: 20200105
  3. FEMIBION [Concomitant]
     Dates: start: 20200106, end: 20200212
  4. RANITIDINE. [Concomitant]
     Active Substance: RANITIDINE
     Dates: start: 20191107, end: 20191107
  5. FENISTIL [Concomitant]
     Active Substance: DIMETHINDENE
     Dates: start: 20191107, end: 20191107
  6. URSOFALK [Concomitant]
     Active Substance: URSODIOL
     Dates: start: 20200825, end: 20200902
  7. OCRELIZUMAB. [Suspect]
     Active Substance: OCRELIZUMAB
     Indication: PRODUCT USED FOR UNKNOWN INDICATION
     Route: 042
     Dates: start: 20191107, end: 20191107
  8. FEMIBION [Concomitant]
     Dates: start: 20200213, end: 20200902
  9. VAGISAN (GERMANY) [Concomitant]
     Dates: start: 20200702, end: 20200709

REACTIONS (2)
  - Maternal exposure during pregnancy [Unknown]
  - Cholestasis of pregnancy [Recovered/Resolved]

NARRATIVE: CASE EVENT DATE: 20200819
